FAERS Safety Report 20382718 (Version 2)
Quarter: 2022Q2

REPORT INFORMATION
  Report Type: Spontaneous
  Country: IT (occurrence: IT)
  Receive Date: 20220127
  Receipt Date: 20220418
  Transmission Date: 20220721
  Serious: Yes (Death, Life-Threatening, Other)
  Sender: FDA-Public Use
  Company Number: IT-BRACCO-2022IT00254

PATIENT
  Age: 54 Year
  Sex: Male

DRUGS (1)
  1. BARIUM SULFATE [Suspect]
     Active Substance: BARIUM SULFATE
     Indication: X-ray gastrointestinal tract

REACTIONS (5)
  - Acute respiratory failure [Fatal]
  - Pneumonia aspiration [Unknown]
  - Cough [Unknown]
  - Dyspnoea [Unknown]
  - Vomiting [Unknown]
